FAERS Safety Report 13098434 (Version 1)
Quarter: 2017Q1

REPORT INFORMATION
  Report Type: Report from Study
  Country: CO (occurrence: CO)
  Receive Date: 20170109
  Receipt Date: 20170109
  Transmission Date: 20170428
  Serious: Yes (Death, Hospitalization, Other)
  Sender: FDA-Public Use
  Company Number: CO-AMGEN-COLSL2017002114

PATIENT
  Age: 49 Year
  Sex: Female

DRUGS (1)
  1. ARANESP [Suspect]
     Active Substance: DARBEPOETIN ALFA
     Indication: NEPHROGENIC ANAEMIA
     Dosage: 50 MUG, Q2WK (BIWEEKLY)
     Route: 058

REACTIONS (3)
  - Cardiac failure [Fatal]
  - Respiratory failure [Fatal]
  - Pain [Unknown]

NARRATIVE: CASE EVENT DATE: 20161213
